FAERS Safety Report 6166628-6 (Version None)
Quarter: 2009Q2

REPORT INFORMATION
  Report Type: 
  Country: None (occurrence: None)
  Receive Date: 20090424
  Receipt Date: 20090417
  Transmission Date: 20091009
  Serious: Yes (Other)
  Sender: FDA-Public Use
  Company Number: US-AVENTIS-200911505US

PATIENT
  Sex: Male
  Weight: 127.01 kg

DRUGS (5)
  1. LOVENOX [Suspect]
     Indication: DEEP VEIN THROMBOSIS
     Route: 058
     Dates: start: 20080611, end: 20080618
  2. PLAVIX [Concomitant]
     Dates: start: 20040601, end: 20080601
  3. NEXIUM [Concomitant]
     Dates: start: 20041001
  4. VYTORIN [Concomitant]
     Dosage: DOSE: 10-20
     Route: 048
     Dates: start: 20040601
  5. PROTONIX [Concomitant]
     Dates: start: 20080611

REACTIONS (8)
  - BLOOD ALBUMIN DECREASED [None]
  - BLOOD CREATININE INCREASED [None]
  - BLOOD UREA INCREASED [None]
  - GLOMERULAR FILTRATION RATE DECREASED [None]
  - NEPHROTIC SYNDROME [None]
  - OEDEMA [None]
  - PROTEIN TOTAL DECREASED [None]
  - RENAL FAILURE [None]
